FAERS Safety Report 16106515 (Version 1)
Quarter: 2019Q1

REPORT INFORMATION
  Report Type: Spontaneous
  Country: FR (occurrence: FR)
  Receive Date: 20190322
  Receipt Date: 20190322
  Transmission Date: 20190418
  Serious: Yes (Other)
  Sender: FDA-Public Use
  Company Number: FR-PROVELL PHARMACEUTICALS-2064418

PATIENT
  Age: 47 Year
  Sex: Male
  Weight: 97 kg

DRUGS (1)
  1. EUTHYROX [Suspect]
     Active Substance: LEVOTHYROXINE SODIUM
     Indication: POST PROCEDURAL HYPOTHYROIDISM
     Dates: start: 201703

REACTIONS (14)
  - Blood pressure abnormal [None]
  - Alopecia [None]
  - Angina pectoris [None]
  - Gynaecomastia [None]
  - Insomnia [None]
  - Weight increased [None]
  - Palpitations [None]
  - Pruritus [None]
  - Arrhythmia [None]
  - Thyroid mass [None]
  - Fatigue [None]
  - Breast discomfort [None]
  - Dry skin [None]
  - Epididymal cyst [None]

NARRATIVE: CASE EVENT DATE: 201703
